FAERS Safety Report 4817301-5 (Version None)
Quarter: 2005Q4

REPORT INFORMATION
  Report Type: 
  Country: None (occurrence: None)
  Receive Date: 20051018
  Receipt Date: 20050214
  Transmission Date: 20060501
  Serious: Yes (Other)
  Sender: FDA-Public Use
  Company Number: PHEH2004US10219

PATIENT
  Age: 71 Year
  Sex: Female

DRUGS (4)
  1. ZOMETA [Suspect]
     Indication: BREAST CANCER METASTATIC
     Dosage: 4 MG Q 4 WEEKS, INFUSION
     Dates: start: 20030122, end: 20031223
  2. AREDIA [Suspect]
     Indication: BREAST CANCER METASTATIC
     Dosage: 90 MG Q 4 WEEKS, INFUSION
     Dates: start: 20040121, end: 20040609
  3. ARIMIDEX ^ASTRAZENECA^ (ANASTRAZOLE) [Concomitant]
  4. DIOVAN ^NOVARTIS^ (VALSARTAN) [Concomitant]

REACTIONS (5)
  - BONE DEBRIDEMENT [None]
  - IMPAIRED HEALING [None]
  - OSTEONECROSIS [None]
  - SOFT TISSUE DISORDER [None]
  - TOOTH EXTRACTION [None]
